FAERS Safety Report 24440705 (Version 2)
Quarter: 2024Q4

REPORT INFORMATION
  Report Type: Report from Study
  Country: US (occurrence: US)
  Receive Date: 20241016
  Receipt Date: 20241017
  Transmission Date: 20250115
  Serious: No
  Sender: ROCHE
  Company Number: US-ROCHE-3332253

PATIENT
  Age: 52 Year
  Sex: Male
  Weight: 70.8 kg

DRUGS (4)
  1. HEMLIBRA [Suspect]
     Active Substance: EMICIZUMAB-KXWH
     Indication: Factor VII deficiency
     Route: 058
     Dates: start: 20221214
  2. HEMLIBRA [Suspect]
     Active Substance: EMICIZUMAB-KXWH
     Indication: Factor VIII deficiency
     Route: 058
     Dates: start: 202110
  3. HEMLIBRA [Suspect]
     Active Substance: EMICIZUMAB-KXWH
     Route: 058
     Dates: start: 202111
  4. HEMLIBRA [Suspect]
     Active Substance: EMICIZUMAB-KXWH
     Route: 058
     Dates: start: 202110

REACTIONS (13)
  - Fall [Unknown]
  - Joint injury [Unknown]
  - Haemorrhage [Recovered/Resolved]
  - Joint swelling [Unknown]
  - Buttock injury [Unknown]
  - Limb injury [Unknown]
  - Infection [Unknown]
  - Breakthrough pain [Unknown]
  - Arthralgia [Unknown]
  - Mobility decreased [Unknown]
  - Haemarthrosis [Unknown]
  - Swelling [Recovered/Resolved]
  - Blood urine present [Unknown]

NARRATIVE: CASE EVENT DATE: 20230228
